FAERS Safety Report 21043125 (Version 1)
Quarter: 2022Q3

REPORT INFORMATION
  Report Type: Spontaneous
  Country: US (occurrence: None)
  Receive Date: 20220702
  Receipt Date: 20220702
  Transmission Date: 20221026
  Serious: Yes (Hospitalization)
  Sender: FDA-Public Use
  Company Number: None

PATIENT
  Age: 19 Year
  Sex: Male
  Weight: 72.7 kg

DRUGS (6)
  1. CYTARABINE [Suspect]
     Active Substance: CYTARABINE
     Dates: end: 20220617
  2. DAUNORUBICIN [Suspect]
     Active Substance: DAUNORUBICIN
     Dates: end: 20220624
  3. METHOTREXATE [Suspect]
     Active Substance: METHOTREXATE
     Dates: end: 20220624
  4. ONCASPAR [Suspect]
     Active Substance: PEGASPARGASE
     Dates: end: 20220620
  5. PREDNISOLONE [Suspect]
     Active Substance: PREDNISOLONE
     Dates: end: 20220626
  6. VINCRISTINE [Suspect]
     Active Substance: VINCRISTINE
     Dates: end: 20220624

REACTIONS (11)
  - Pancreatitis [None]
  - Multiple organ dysfunction syndrome [None]
  - Acute kidney injury [None]
  - Hyponatraemia [None]
  - Hypokalaemia [None]
  - Acidosis [None]
  - Hypocalcaemia [None]
  - Tachycardia [None]
  - Oliguria [None]
  - Abdominal distension [None]
  - Hypotension [None]

NARRATIVE: CASE EVENT DATE: 20220628
